FAERS Safety Report 20622255 (Version 4)
Quarter: 2022Q2

REPORT INFORMATION
  Report Type: Spontaneous
  Country: US (occurrence: US)
  Receive Date: 20220322
  Receipt Date: 20220620
  Transmission Date: 20220720
  Serious: No
  Sender: FDA-Public Use
  Company Number: US-NOVOPROD-895963

PATIENT
  Age: 48 Year
  Sex: Female

DRUGS (2)
  1. WEGOVY [Suspect]
     Active Substance: SEMAGLUTIDE
     Indication: Product used for unknown indication
     Dosage: 1.7 MG, QW
     Route: 058
     Dates: start: 202109
  2. WEGOVY [Suspect]
     Active Substance: SEMAGLUTIDE
     Indication: Product used for unknown indication
     Dosage: 2.4 MG, QW
     Route: 058
     Dates: start: 202109

REACTIONS (4)
  - Device failure [Not Recovered/Not Resolved]
  - Device failure [Not Recovered/Not Resolved]
  - Injection site bruising [Recovered/Resolved]
  - Product communication issue [Not Recovered/Not Resolved]

NARRATIVE: CASE EVENT DATE: 20220105
